FAERS Safety Report 10598374 (Version 1)
Quarter: 2014Q4

REPORT INFORMATION
  Report Type: Other
  Country: DE (occurrence: DE)
  Receive Date: 20141121
  Receipt Date: 20141121
  Transmission Date: 20150529
  Serious: Yes (Other)
  Sender: FDA-Public Use
  Company Number: DE-MYLANLABS-2014M1010621

PATIENT

DRUGS (11)
  1. MAXALT [Concomitant]
     Active Substance: RIZATRIPTAN BENZOATE
     Indication: MIGRAINE
     Dosage: 20 [MG/D ]/ IF REQUIRED 10 OR 20 MG/D;EXPOSURE DATE:10.5.;13.5.;14.5.;23.5.;27.5.;5.6.;10.6.;3.7; MA
     Route: 048
     Dates: start: 20140510, end: 20140703
  2. SUMATRIPTAN. [Concomitant]
     Active Substance: SUMATRIPTAN
     Indication: MIGRAINE
     Dosage: 100 [MG/D ]/ EXPOSURE DATE: 1.7.; 2.7.; 4.7.; 22.7.; 23.7.; 28.7.; 30.7.
     Route: 048
     Dates: start: 20140701, end: 20140730
  3. OMEPRAZOL [Concomitant]
     Active Substance: OMEPRAZOLE
     Indication: GASTRITIS PROPHYLAXIS
     Dosage: 20 [MG/D ]/ MAYBE LONGER
     Route: 048
     Dates: start: 20140506, end: 20140818
  4. FOLIO FORTE [Concomitant]
     Active Substance: FOLIC ACID\VITAMINS
     Indication: PROPHYLAXIS OF NEURAL TUBE DEFECT
     Dosage: 0.8 [MG/D ]
     Route: 048
  5. ALLEGRO 2,5 [Concomitant]
     Indication: MIGRAINE
     Dosage: 25 [MG/D ]/ EXPOSURE DATE: 6.5.; 14.5., 18.5.; 22.5.;  25.5.; 27.5.
     Route: 048
     Dates: start: 20140506, end: 20140527
  6. RELPAX [Concomitant]
     Active Substance: ELETRIPTAN HYDROBROMIDE
     Indication: MIGRAINE
     Dosage: 40 [MG/D ]/ EXPOSURE DATE: 28.5.; 29.5.; 1.6.; 4.6.;12.6.
     Route: 048
     Dates: start: 20140528, end: 20140612
  7. TOPIRAMATE. [Suspect]
     Active Substance: TOPIRAMATE
     Indication: MIGRAINE PROPHYLAXIS
     Dosage: 150 MG, QD (DOSAGE BETWEEN 150 MG/D AND 25 MG/D)
     Route: 048
     Dates: start: 20140515, end: 20140905
  8. PERFALGAN [Concomitant]
     Active Substance: ACETAMINOPHEN
     Indication: MIGRAINE
     Dosage: EXPOSURE DATE: 10.5.; 12.5.; 13.5.; 14.5
     Route: 042
     Dates: start: 20140510, end: 20140514
  9. NOVALGIN [Concomitant]
     Active Substance: METAMIZOLE SODIUM
     Indication: MIGRAINE
     Dosage: EXPOSURE DATE: 10.5.; 12.5.; 13.5.; 14.5
     Route: 042
     Dates: start: 20140510, end: 20140514
  10. DORMICUM [Concomitant]
     Active Substance: MIDAZOLAM\MIDAZOLAM HYDROCHLORIDE
     Indication: MIGRAINE
     Dosage: EXPOSURE DATE: 10.5.; 12.5.; 13.5.; 14.5
     Route: 042
     Dates: start: 20140510, end: 20140514
  11. ASS 100 [Concomitant]
     Active Substance: ASPIRIN
     Indication: MIGRAINE
     Dosage: 100 [MG/D ]
     Route: 048
     Dates: start: 20140525, end: 20140525

REACTIONS (2)
  - Abortion missed [Recovered/Resolved]
  - Exposure during pregnancy [Unknown]
